FAERS Safety Report 25818420 (Version 1)
Quarter: 2025Q3

REPORT INFORMATION
  Report Type: Spontaneous
  Country: GB (occurrence: GB)
  Receive Date: 20250918
  Receipt Date: 20250918
  Transmission Date: 20251020
  Serious: Yes (Other)
  Sender: AUROBINDO
  Company Number: GB-MHRA-MED-202509062215307960-CGRHL

PATIENT
  Age: 65 Year
  Sex: Female

DRUGS (2)
  1. ATORVASTATIN [Suspect]
     Active Substance: ATORVASTATIN
     Indication: Blood cholesterol increased
     Dosage: 20 MILLIGRAM, ONCE A DAY
     Route: 065
     Dates: start: 20210421, end: 20250828
  2. DILTIAZEM [Concomitant]
     Active Substance: DILTIAZEM
     Indication: Atrial flutter
     Route: 065
     Dates: start: 20210421

REACTIONS (1)
  - Brain fog [Recovering/Resolving]

NARRATIVE: CASE EVENT DATE: 20240901
